FAERS Safety Report 25218008 (Version 1)
Quarter: 2025Q2

REPORT INFORMATION
  Report Type: Spontaneous
  Country: AU (occurrence: AU)
  Receive Date: 20250421
  Receipt Date: 20250421
  Transmission Date: 20250716
  Serious: Yes (Other)
  Sender: Alvotech
  Company Number: None

PATIENT
  Sex: Female

DRUGS (4)
  1. ADALIMUMAB [Suspect]
     Active Substance: ADALIMUMAB
     Indication: Hidradenitis
     Dosage: 40 MILLIGRAM, 1 WEEK
     Route: 065
     Dates: start: 20180903, end: 20221108
  2. INFLIXIMAB [Suspect]
     Active Substance: INFLIXIMAB
     Indication: Hidradenitis
     Dosage: 800 MILLIGRAM, EVERY 6 WEEKS
     Route: 065
     Dates: start: 20220912, end: 20230331
  3. CLINDAMYCIN [Concomitant]
     Active Substance: CLINDAMYCIN
     Indication: Product used for unknown indication
     Route: 065
  4. RESORCINOL [Concomitant]
     Active Substance: RESORCINOL
     Indication: Product used for unknown indication
     Route: 065

REACTIONS (4)
  - Treatment failure [Unknown]
  - Anaphylactic reaction [Unknown]
  - Hidradenitis [Unknown]
  - Condition aggravated [Unknown]
